FAERS Safety Report 7906770-X (Version None)
Quarter: 2011Q4

REPORT INFORMATION
  Report Type: 
  Country: None (occurrence: None)
  Receive Date: 20111109
  Receipt Date: 20111109
  Transmission Date: 20120403
  Serious: No
  Sender: FDA-Public Use
  Company Number: None

PATIENT
  Age: 42 Year
  Sex: Female
  Weight: 72.5755 kg

DRUGS (1)
  1. CYMBALTA [Suspect]
     Indication: PAIN MANAGEMENT
     Dosage: 60 MG MORNING MOUTH  JUNE SAMPLES - JULY PHARMACY - AUGUST SAMPLES
     Route: 048

REACTIONS (13)
  - MOOD ALTERED [None]
  - AMNESIA [None]
  - AGGRESSION [None]
  - CRYING [None]
  - ANGER [None]
  - SLEEP TALKING [None]
  - SCREAMING [None]
  - ANXIETY [None]
  - IMPATIENCE [None]
  - CHROMATURIA [None]
  - INSOMNIA [None]
  - SOMNAMBULISM [None]
  - LOGORRHOEA [None]
